FAERS Safety Report 10177960 (Version 1)
Quarter: 2014Q2

REPORT INFORMATION
  Report Type: Spontaneous
  Country: US (occurrence: US)
  Receive Date: 20140516
  Receipt Date: 20140516
  Transmission Date: 20141212
  Serious: Yes (Other)
  Sender: FDA-Public Use
  Company Number: US-RB-067339-14

PATIENT
  Age: 34 Year
  Sex: Male

DRUGS (2)
  1. SUBOXONE FILM [Suspect]
     Indication: DRUG DEPENDENCE
     Dosage: SUBOXONE FILM
     Route: 060
     Dates: start: 2013, end: 201312
  2. SUBOXONE FILM [Suspect]
     Indication: PAIN MANAGEMENT
     Dosage: SUBOXONE FILM
     Route: 060
     Dates: start: 201312

REACTIONS (3)
  - Road traffic accident [Recovered/Resolved]
  - Rib fracture [Recovered/Resolved]
  - Pain [Recovered/Resolved]
